FAERS Safety Report 6766981-6 (Version None)
Quarter: 2010Q2

REPORT INFORMATION
  Report Type: 
  Country: None (occurrence: None)
  Receive Date: 20100611
  Receipt Date: 20100604
  Transmission Date: 20101027
  Serious: Yes (Hospitalization)
  Sender: FDA-Public Use
  Company Number: FR-AMGEN-KDC416314

PATIENT
  Sex: Female
  Weight: 73 kg

DRUGS (10)
  1. VECTIBIX [Suspect]
     Indication: BREAST CANCER
     Dates: start: 20100223
  2. DOCETAXEL [Suspect]
     Dates: start: 20100518
  3. SOLUPRED [Concomitant]
     Dates: start: 20100224
  4. ZINC GLUCONATE [Concomitant]
     Dates: start: 20100503
  5. EMEND [Concomitant]
     Dates: start: 20100406
  6. TRIFLUCAN [Concomitant]
     Dates: start: 20100428
  7. LOCOID [Concomitant]
     Dates: start: 20100503
  8. BICARBONATE [Concomitant]
     Dates: start: 20100224
  9. CETYLPYRIDINIUM CHLORIDE [Concomitant]
     Dates: start: 20100224
  10. CHLOROBUTANOL/POLYVINYL ALCOHOL [Concomitant]
     Dates: start: 20100224

REACTIONS (1)
  - FEBRILE BONE MARROW APLASIA [None]
